FAERS Safety Report 23573706 (Version 1)
Quarter: 2024Q1

REPORT INFORMATION
  Report Type: Spontaneous
  Country: US (occurrence: US)
  Receive Date: 20240228
  Receipt Date: 20240228
  Transmission Date: 20240410
  Serious: No
  Sender: FDA-Public Use
  Company Number: US-RK PHARMA, INC-20230800037

PATIENT

DRUGS (1)
  1. DOXEPIN HYDROCHLORIDE [Suspect]
     Active Substance: DOXEPIN HYDROCHLORIDE
     Dosage: UNKNOWN DOSE

REACTIONS (2)
  - Tongue discomfort [Unknown]
  - Oral discomfort [Unknown]
